FAERS Safety Report 21472192 (Version 1)
Quarter: 2022Q4

REPORT INFORMATION
  Report Type: Spontaneous
  Country: FR (occurrence: FR)
  Receive Date: 20221018
  Receipt Date: 20221018
  Transmission Date: 20230112
  Serious: Yes (Other)
  Sender: FDA-Public Use
  Company Number: None

PATIENT

DRUGS (1)
  1. BELIMUMAB [Suspect]
     Active Substance: BELIMUMAB
     Indication: Lupus-like syndrome
     Dosage: UNK
     Route: 042
     Dates: start: 202103

REACTIONS (1)
  - Histiocytic sarcoma [Not Recovered/Not Resolved]

NARRATIVE: CASE EVENT DATE: 20220801
